FAERS Safety Report 9041371 (Version 1)
Quarter: 2013Q1

REPORT INFORMATION
  Report Type: Spontaneous
  Country: US (occurrence: None)
  Receive Date: 20130125
  Receipt Date: 20130125
  Transmission Date: 20140127
  Serious: Yes (Other)
  Sender: FDA-Public Use
  Company Number: None

PATIENT
  Sex: Male
  Weight: 127.92 kg

DRUGS (1)
  1. CARVEDILOL [Suspect]
     Indication: HYPERTENSION
     Dosage: 6.25 MG  ONE BID  PO
     Route: 048
     Dates: start: 20121106

REACTIONS (3)
  - Product substitution issue [None]
  - Anxiety [None]
  - Feeling abnormal [None]
